FAERS Safety Report 10358422 (Version 2)
Quarter: 2015Q1

REPORT INFORMATION
  Report Type: Report from Study
  Country: US (occurrence: US)
  Receive Date: 20140801
  Receipt Date: 20150210
  Transmission Date: 20150720
  Serious: Yes (Other)
  Sender: FDA-Public Use
  Company Number: US-ABBVIE-14P-163-1266082-00

PATIENT
  Age: 38 Year

DRUGS (3)
  1. REYATAZ [Suspect]
     Active Substance: ATAZANAVIR SULFATE
     Indication: ANTIRETROVIRAL THERAPY
     Route: 048
  2. TRUVADA [Suspect]
     Active Substance: EMTRICITABINE\TENOFOVIR DISOPROXIL FUMARATE
     Indication: ANTIRETROVIRAL THERAPY
     Dosage: 1 TAB/CAPS
     Route: 048
  3. RITONAVIR. [Suspect]
     Active Substance: RITONAVIR
     Indication: ANTIRETROVIRAL THERAPY
     Route: 048

REACTIONS (1)
  - Placenta accreta [Unknown]

NARRATIVE: CASE EVENT DATE: 20140605
